FAERS Safety Report 8043608-7 (Version None)
Quarter: 2012Q1

REPORT INFORMATION
  Report Type: 
  Country: None (occurrence: None)
  Receive Date: 20120112
  Receipt Date: 20120104
  Transmission Date: 20120608
  Serious: Yes (Other)
  Sender: FDA-Public Use
  Company Number: US-BAXTER-2010BH002326

PATIENT
  Age: 49 Year
  Sex: Male
  Weight: 130 kg

DRUGS (13)
  1. HEPARIN SODIUM INJECTION [Suspect]
     Indication: CHEST PAIN
     Route: 042
     Dates: start: 20071129, end: 20080228
  2. HEPARIN SODIUM INJECTION [Suspect]
     Route: 042
     Dates: start: 20071129
  3. MORPHINE [Concomitant]
     Indication: PRODUCT USED FOR UNKNOWN INDICATION
     Route: 065
  4. PACERONE [Concomitant]
     Indication: PRODUCT USED FOR UNKNOWN INDICATION
     Route: 065
  5. CARTIA XT [Concomitant]
     Indication: PRODUCT USED FOR UNKNOWN INDICATION
     Route: 065
  6. HEPARIN SODIUM INJECTION [Suspect]
     Route: 042
     Dates: start: 20071129, end: 20071130
  7. DIOVAN [Concomitant]
     Indication: PRODUCT USED FOR UNKNOWN INDICATION
     Route: 065
  8. HEPARIN SODIUM 5,000 UNITS IN DEXTROSE 5% [Suspect]
     Indication: PRODUCT USED FOR UNKNOWN INDICATION
     Route: 042
     Dates: start: 20071129
  9. WARFARIN SODIUM [Concomitant]
     Indication: PRODUCT USED FOR UNKNOWN INDICATION
     Route: 065
  10. METOPROLOL [Concomitant]
     Indication: PRODUCT USED FOR UNKNOWN INDICATION
     Route: 065
  11. VALIUM [Concomitant]
     Indication: PRODUCT USED FOR UNKNOWN INDICATION
     Route: 065
  12. SIMVASTATIN [Concomitant]
     Indication: PRODUCT USED FOR UNKNOWN INDICATION
     Route: 065
  13. PERCOCET [Concomitant]
     Indication: PRODUCT USED FOR UNKNOWN INDICATION
     Route: 065

REACTIONS (13)
  - ARTHRALGIA [None]
  - ASTHENIA [None]
  - HYPOTENSION [None]
  - DIARRHOEA [None]
  - ARRHYTHMIA [None]
  - ASTHMA [None]
  - RHEUMATOID ARTHRITIS [None]
  - BLOOD PRESSURE FLUCTUATION [None]
  - VOMITING [None]
  - PALPITATIONS [None]
  - HYPERTENSION [None]
  - NAUSEA [None]
  - DIZZINESS [None]
